FAERS Safety Report 6184941-3 (Version None)
Quarter: 2009Q2

REPORT INFORMATION
  Report Type: 
  Country: None (occurrence: None)
  Receive Date: 20090511
  Receipt Date: 20090428
  Transmission Date: 20091009
  Serious: Yes (Other)
  Sender: FDA-Public Use
  Company Number: US-ELI_LILLY_AND_COMPANY-US200904002663

PATIENT
  Sex: Male
  Weight: 58.821 kg

DRUGS (11)
  1. GEMCITABINE HCL [Suspect]
     Indication: PANCREATIC CARCINOMA METASTATIC
     Dosage: 1000 MG/M2, 2/M
     Route: 042
     Dates: start: 20090213, end: 20090325
  2. OTHER PHARMA COMPANY INV DRUG [Suspect]
     Indication: PANCREATIC CARCINOMA METASTATIC
     Dosage: 25 MG/M2, OTHER
     Route: 048
     Dates: start: 20090311, end: 20090330
  3. VIOKASE [Concomitant]
  4. ACYCLOVIR [Concomitant]
  5. MORPHINE SULFATE [Concomitant]
  6. MULTI-VITAMIN [Concomitant]
  7. ZYRTEC [Concomitant]
  8. PROBIOTICA [Concomitant]
  9. MEGACE [Concomitant]
     Dates: start: 20090311
  10. DILAUDID [Concomitant]
     Dates: start: 20090213
  11. FENTANYL [Concomitant]
     Dates: start: 20090213

REACTIONS (2)
  - LIVER FUNCTION TEST ABNORMAL [None]
  - NEUTROPENIA [None]
